FAERS Safety Report 14906253 (Version 1)
Quarter: 2018Q2

REPORT INFORMATION
  Report Type: Spontaneous
  Country: US (occurrence: US)
  Receive Date: 20180517
  Receipt Date: 20180517
  Transmission Date: 20180711
  Serious: No
  Sender: FDA-Public Use
  Company Number: US-SA-2018SA103102

PATIENT
  Age: 33 Year
  Sex: Male

DRUGS (2)
  1. LANTUS [Suspect]
     Active Substance: INSULIN GLARGINE
     Indication: TYPE 1 DIABETES MELLITUS
     Dosage: DOSE:20 UNIT(S)
     Route: 051
     Dates: start: 201710
  2. SOLOSTAR [Suspect]
     Active Substance: DEVICE
     Dates: start: 201710

REACTIONS (6)
  - Irritability [Unknown]
  - Drug ineffective [Unknown]
  - Malaise [Unknown]
  - Fatigue [Unknown]
  - Blood glucose abnormal [Unknown]
  - Product use issue [Unknown]
